FAERS Safety Report 20110623 (Version 1)
Quarter: 2021Q4

REPORT INFORMATION
  Report Type: Spontaneous
  Country: US (occurrence: US)
  Receive Date: 20211124
  Receipt Date: 20211124
  Transmission Date: 20220303
  Serious: Yes (Hospitalization, Other)
  Sender: FDA-Public Use
  Company Number: US-HORIZON THERAPEUTICS-HZN-2021-009017

PATIENT

DRUGS (3)
  1. RAYOS [Suspect]
     Active Substance: PREDNISONE
     Indication: Rheumatoid arthritis
     Dosage: DURATION 6 YEARS, UNK
     Route: 065
  2. RITUXIMAB [Concomitant]
     Active Substance: RITUXIMAB
     Indication: Rheumatoid arthritis
     Dosage: DURATION 6 YEARS, UNK
     Route: 065
  3. HUMAN IMMUNOGLOBULIN G [Concomitant]
     Active Substance: HUMAN IMMUNOGLOBULIN G
     Dosage: UNK
     Route: 042

REACTIONS (9)
  - Panniculitis [Unknown]
  - Haemophagocytic lymphohistiocytosis [Unknown]
  - Enterovirus infection [Unknown]
  - Type 1 diabetes mellitus [Unknown]
  - Pancreatitis acute [Unknown]
  - Deafness neurosensory [Unknown]
  - Fat necrosis [Unknown]
  - Oedema [Unknown]
  - Coxsackie viral infection [Unknown]
